FAERS Safety Report 23955008 (Version 1)
Quarter: 2024Q2

REPORT INFORMATION
  Report Type: Report from Study
  Country: CA (occurrence: CA)
  Receive Date: 20240610
  Receipt Date: 20240610
  Transmission Date: 20240716
  Serious: Yes (Hospitalization)
  Sender: FDA-Public Use
  Company Number: CA-BIOGEN-2024BI01251371

PATIENT
  Age: 15 Year
  Sex: Female

DRUGS (2)
  1. SPINRAZA [Suspect]
     Active Substance: NUSINERSEN
     Indication: Spinal muscular atrophy
     Dosage: DAY 0,14,28,58  AND EVERY 4 MONTHS THEREAFTER
     Route: 050
     Dates: start: 20170712
  2. CALCIUM [Concomitant]
     Active Substance: CALCIUM
     Indication: Product used for unknown indication
     Route: 050

REACTIONS (1)
  - Spinal muscular atrophy [Unknown]

NARRATIVE: CASE EVENT DATE: 20231201
